FAERS Safety Report 8639243 (Version 3)
Quarter: 2013Q1

REPORT INFORMATION
  Report Type: Spontaneous
  Country: US (occurrence: US)
  Receive Date: 20120627
  Receipt Date: 20130325
  Transmission Date: 20140127
  Serious: No
  Sender: FDA-Public Use
  Company Number: US-ASTRAZENECA-2012SE40762

PATIENT
  Age: 75 Year
  Sex: Female

DRUGS (6)
  1. NEXIUM [Suspect]
     Indication: GASTROOESOPHAGEAL REFLUX DISEASE
     Route: 048
  2. NEXIUM [Suspect]
     Indication: GASTROOESOPHAGEAL REFLUX DISEASE
     Route: 048
  3. NEXIUM [Suspect]
     Indication: GASTROOESOPHAGEAL REFLUX DISEASE
     Route: 048
  4. NEXIUM [Suspect]
     Indication: GASTROOESOPHAGEAL REFLUX DISEASE
     Route: 048
  5. ATACAND HCT [Suspect]
     Dosage: 16+UNKNOWN
     Route: 048
  6. CRESTOR [Suspect]
     Route: 048

REACTIONS (4)
  - Gastrooesophageal reflux disease [Unknown]
  - Off label use [Unknown]
  - Drug effect decreased [Unknown]
  - Drug ineffective [Not Recovered/Not Resolved]
